FAERS Safety Report 16626535 (Version 1)
Quarter: 2019Q3

REPORT INFORMATION
  Report Type: Spontaneous
  Country: US (occurrence: US)
  Receive Date: 20190724
  Receipt Date: 20190724
  Transmission Date: 20191004
  Serious: No
  Sender: FDA-Public Use
  Company Number: US-TEVA-2019-US-1080907

PATIENT
  Sex: Female

DRUGS (1)
  1. ALPRAZOLAM TABLET [Suspect]
     Active Substance: ALPRAZOLAM
     Indication: ANXIETY
     Dosage: DOSE STRENGTH: 0.5
     Route: 065
     Dates: start: 20190622

REACTIONS (2)
  - Pelvic pain [Unknown]
  - Urine odour abnormal [Unknown]

NARRATIVE: CASE EVENT DATE: 20190709
